FAERS Safety Report 22213939 (Version 1)
Quarter: 2023Q2

REPORT INFORMATION
  Report Type: Spontaneous
  Country: CA (occurrence: CA)
  Receive Date: 20230414
  Receipt Date: 20230414
  Transmission Date: 20230722
  Serious: Yes (Other)
  Sender: FDA-Public Use
  Company Number: CA-ABBVIE-4728851

PATIENT
  Age: 44 Year
  Sex: Male
  Weight: 74 kg

DRUGS (5)
  1. HUMIRA [Suspect]
     Active Substance: ADALIMUMAB
     Indication: Product used for unknown indication
     Route: 058
  2. INFLECTRA [Suspect]
     Active Substance: INFLIXIMAB-DYYB
     Indication: Colitis ulcerative
     Route: 042
     Dates: start: 20210601
  3. INFLECTRA [Suspect]
     Active Substance: INFLIXIMAB-DYYB
     Indication: Colitis ulcerative
     Dosage: LAST ADMIN DATE: 2021
     Route: 042
     Dates: start: 20210517
  4. INFLECTRA [Suspect]
     Active Substance: INFLIXIMAB-DYYB
     Indication: Colitis ulcerative
     Dosage: LAST ADMIN DATE: 2021
     Route: 042
     Dates: start: 20210416
  5. METHOTREXATE [Concomitant]
     Active Substance: METHOTREXATE
     Indication: Product used for unknown indication

REACTIONS (25)
  - Haemorrhage [Unknown]
  - Heart rate increased [Unknown]
  - Platelet count increased [Unknown]
  - Pruritus [Unknown]
  - Anorectal discomfort [Unknown]
  - Lip erythema [Unknown]
  - Blood pressure fluctuation [Unknown]
  - Defaecation urgency [Unknown]
  - Body temperature fluctuation [Unknown]
  - Inappropriate schedule of product administration [Unknown]
  - Nodule [Unknown]
  - Acne [Unknown]
  - Tissue discolouration [Unknown]
  - Infusion related reaction [Unknown]
  - Urticaria [Unknown]
  - Leukopenia [Unknown]
  - Drug specific antibody present [Unknown]
  - Mucosal inflammation [Unknown]
  - Anxiety [Unknown]
  - Oral pruritus [Unknown]
  - Intestinal mucosal tear [Unknown]
  - Clostridium difficile infection [Unknown]
  - Inflammation [Unknown]
  - Hypersensitivity [Unknown]
  - Paraesthesia oral [Unknown]
